FAERS Safety Report 23508617 (Version 2)
Quarter: 2024Q4

REPORT INFORMATION
  Report Type: Spontaneous
  Country: NL (occurrence: NL)
  Receive Date: 20240209
  Receipt Date: 20241210
  Transmission Date: 20250115
  Serious: Yes (Congenital Anomaly, Other)
  Sender: GLENMARK
  Company Number: NL-GLENMARK PHARMACEUTICALS-2024GMK088819

PATIENT

DRUGS (9)
  1. MOMETASONE FUROATE [Suspect]
     Active Substance: MOMETASONE FUROATE
     Indication: Drug therapy
     Dosage: UNK
     Route: 065
  2. ACETAMINOPHEN [Suspect]
     Active Substance: ACETAMINOPHEN
     Indication: Product used for unknown indication
     Dosage: UNK
     Route: 064
  3. LEVOCETIRIZINE [Suspect]
     Active Substance: LEVOCETIRIZINE
     Indication: Drug therapy
     Dosage: UNK
     Route: 065
  4. SALICYLIC ACID [Suspect]
     Active Substance: SALICYLIC ACID
     Indication: Product used for unknown indication
     Dosage: UNK
     Route: 064
  5. DUPILUMAB [Suspect]
     Active Substance: DUPILUMAB
     Indication: Eczema
     Dosage: UNK
     Route: 065
  6. DUPILUMAB [Suspect]
     Active Substance: DUPILUMAB
     Indication: Drug therapy
  7. COVID-19 VACCINE NOS [Suspect]
     Active Substance: COVID-19 VACCINE
     Indication: Product used for unknown indication
     Dosage: UNK
     Route: 064
  8. PERTUSSIS VACCINE [Suspect]
     Active Substance: PERTUSSIS VACCINE
     Indication: Product used for unknown indication
     Dosage: UNK
     Route: 064
  9. BUDESONIDE\FORMOTEROL [Suspect]
     Active Substance: BUDESONIDE\FORMOTEROL
     Indication: Drug therapy
     Dosage: UNK
     Route: 065

REACTIONS (3)
  - Ventricular septal defect [Unknown]
  - Paternal exposure before pregnancy [Unknown]
  - Foetal exposure during pregnancy [Unknown]
